FAERS Safety Report 25026214 (Version 4)
Quarter: 2025Q2

REPORT INFORMATION
  Report Type: Spontaneous
  Country: US (occurrence: US)
  Receive Date: 20250301
  Receipt Date: 20250628
  Transmission Date: 20250717
  Serious: Yes (Disabling)
  Sender: JOHNSON AND JOHNSON
  Company Number: US-JNJFOC-20250259195

PATIENT
  Age: 36 Year
  Sex: Female

DRUGS (4)
  1. TREMFYA [Suspect]
     Active Substance: GUSELKUMAB
     Indication: Colitis ulcerative
     Route: 058
     Dates: start: 20241125, end: 20250306
  2. TREMFYA [Suspect]
     Active Substance: GUSELKUMAB
     Route: 058
     Dates: start: 202411
  3. TREMFYA [Suspect]
     Active Substance: GUSELKUMAB
  4. TREMFYA [Suspect]
     Active Substance: GUSELKUMAB

REACTIONS (3)
  - Colitis ulcerative [Recovering/Resolving]
  - Anaemia [Recovering/Resolving]
  - Drug ineffective [Unknown]

NARRATIVE: CASE EVENT DATE: 20250305
